FAERS Safety Report 4621549-2 (Version None)
Quarter: 2005Q1

REPORT INFORMATION
  Report Type: 
  Country: None (occurrence: None)
  Receive Date: 20050328
  Receipt Date: 20030822
  Transmission Date: 20050727
  Serious: No
  Sender: FDA-Public Use
  Company Number: 5821

PATIENT
  Sex: Female

DRUGS (1)
  1. ACYCLOVIR [Suspect]

REACTIONS (2)
  - ABORTION SPONTANEOUS [None]
  - DRUG EXPOSURE DURING PREGNANCY [None]
